FAERS Safety Report 22279882 (Version 1)
Quarter: 2023Q2

REPORT INFORMATION
  Report Type: Spontaneous
  Country: CN (occurrence: CN)
  Receive Date: 20230503
  Receipt Date: 20230503
  Transmission Date: 20230722
  Serious: Yes (Hospitalization, Other)
  Sender: FDA-Public Use
  Company Number: CN-002147023-NVSC2023CN099277

PATIENT
  Age: 32 Year
  Sex: Female

DRUGS (2)
  1. CYCLOSPORINE [Suspect]
     Active Substance: CYCLOSPORINE
     Indication: Immune thrombocytopenia
     Dosage: 150 MG, BID
     Route: 048
     Dates: start: 20210906
  2. NORETHINDRONE [Suspect]
     Active Substance: NORETHINDRONE
     Indication: Immune thrombocytopenia
     Dosage: 5 G, Q8H
     Route: 048
     Dates: start: 20210906

REACTIONS (2)
  - Superior sagittal sinus thrombosis [Unknown]
  - Product use in unapproved indication [Unknown]
